FAERS Safety Report 9603841 (Version 3)
Quarter: 2014Q1

REPORT INFORMATION
  Report Type: Spontaneous
  Country: US (occurrence: US)
  Receive Date: 20131008
  Receipt Date: 20140115
  Transmission Date: 20141002
  Serious: Yes (Hospitalization, Disabling, Other)
  Sender: FDA-Public Use
  Company Number: US-009507513-1310USA002811

PATIENT
  Age: 62 Year
  Sex: Female
  Weight: 49.43 kg

DRUGS (2)
  1. FOSAMAX [Suspect]
     Indication: OSTEOPOROSIS
     Dosage: 70 MG, QW
     Route: 048
     Dates: start: 2005, end: 201209
  2. FORTEO [Suspect]
     Indication: OSTEOPOROSIS
     Dosage: 20 MICROGRAM, QD
     Route: 058
     Dates: start: 20121215

REACTIONS (9)
  - Femur fracture [Unknown]
  - Surgery [Unknown]
  - Surgery [Unknown]
  - Femur fracture [Recovered/Resolved]
  - Foot fracture [Recovered/Resolved]
  - Foot fracture [Recovered/Resolved]
  - Head injury [Recovered/Resolved]
  - Foot fracture [Unknown]
  - Skeletal injury [Unknown]
